FAERS Safety Report 7297304-4 (Version None)
Quarter: 2011Q1

REPORT INFORMATION
  Report Type: 
  Country: None (occurrence: None)
  Receive Date: 20110216
  Receipt Date: 20110207
  Transmission Date: 20110831
  Serious: Yes (Hospitalization)
  Sender: FDA-Public Use
  Company Number: JP-AMGEN-JPNCT2011004637

PATIENT
  Age: 50 Year
  Sex: Female
  Weight: 55 kg

DRUGS (2)
  1. MINOMYCIN [Concomitant]
     Route: 048
  2. PANITUMUMAB [Suspect]
     Indication: COLORECTAL CANCER
     Dosage: 6 MG/KG, Q2WK
     Route: 041
     Dates: start: 20101109, end: 20101209

REACTIONS (7)
  - DRY SKIN [None]
  - HYPOMAGNESAEMIA [None]
  - PALPITATIONS [None]
  - PRURITUS [None]
  - DYSPNOEA [None]
  - RASH [None]
  - DECREASED APPETITE [None]
